FAERS Safety Report 20573345 (Version 4)
Quarter: 2022Q2

REPORT INFORMATION
  Report Type: Spontaneous
  Country: CN (occurrence: None)
  Receive Date: 20220309
  Receipt Date: 20220527
  Transmission Date: 20220720
  Serious: Yes (Other)
  Sender: FDA-Public Use
  Company Number: 2022A097535

PATIENT
  Age: 65 Year
  Sex: Female

DRUGS (2)
  1. IRESSA [Suspect]
     Active Substance: GEFITINIB
     Dosage: UNKNOWN
     Route: 048
  2. TAGRISSO [Suspect]
     Active Substance: OSIMERTINIB
     Route: 048
     Dates: start: 20210915

REACTIONS (7)
  - Malignant neoplasm progression [Recovering/Resolving]
  - Drug resistance [Unknown]
  - Fear [Unknown]
  - Anger [Unknown]
  - Depression [Unknown]
  - Insurance issue [Unknown]
  - Mouth ulceration [Unknown]
